FAERS Safety Report 15054222 (Version 1)
Quarter: 2018Q2

REPORT INFORMATION
  Report Type: Report from Study
  Country: US (occurrence: US)
  Receive Date: 20180622
  Receipt Date: 20180622
  Transmission Date: 20180711
  Serious: No
  Sender: FDA-Public Use
  Company Number: US-AMGEN-USASL2015112044

PATIENT
  Age: 58 Year
  Sex: Female

DRUGS (1)
  1. SENSIPAR [Suspect]
     Active Substance: CINACALCET HYDROCHLORIDE
     Indication: BLOOD CALCIUM INCREASED
     Dosage: 60 MG OR 120 MG, EVERY OTHER DAY
     Route: 048
     Dates: start: 2013

REACTIONS (3)
  - Adrenal neoplasm [Unknown]
  - Parathyroid disorder [Unknown]
  - Blood calcium abnormal [Unknown]
